FAERS Safety Report 23936874 (Version 2)
Quarter: 2024Q2

REPORT INFORMATION
  Report Type: Spontaneous
  Country: CN (occurrence: None)
  Receive Date: 20240604
  Receipt Date: 20240614
  Transmission Date: 20240716
  Serious: Yes (Hospitalization, Other)
  Sender: FDA-Public Use
  Company Number: 2024A124208

PATIENT
  Age: 69 Year
  Sex: Female

DRUGS (2)
  1. TAGRISSO [Suspect]
     Active Substance: OSIMERTINIB
     Dosage: ONE TABLET EACH DAY
     Route: 048
     Dates: start: 20231202, end: 20240530
  2. ENDOSTATIN [Suspect]
     Active Substance: ENDOSTATIN
     Indication: Product used for unknown indication

REACTIONS (6)
  - Lymphadenopathy [Not Recovered/Not Resolved]
  - Oesophageal compression [Unknown]
  - Dyspnoea [Unknown]
  - Tracheal compression [Unknown]
  - Asthenia [Unknown]
  - Breath holding [Unknown]
